FAERS Safety Report 24294453 (Version 1)
Quarter: 2024Q3

REPORT INFORMATION
  Report Type: Spontaneous
  Country: IT (occurrence: IT)
  Receive Date: 20240906
  Receipt Date: 20240906
  Transmission Date: 20241017
  Serious: Yes (Disabling)
  Sender: GUERBET
  Company Number: IT-GUERBET / GUERBET SpA-IT-20240081

PATIENT
  Age: 61 Year
  Sex: Female

DRUGS (3)
  1. LIPIODOL [Suspect]
     Active Substance: ETHIODIZED OIL
     Indication: Therapeutic embolisation
     Dosage: CYANOACRYLATE GLUE GLUBRAN (GEM) DILUTED AT 33% WITH LIPIODOL.
     Route: 013
  2. DEVICE [Suspect]
     Active Substance: DEVICE
     Indication: Therapeutic embolisation
     Dosage: CYANOACRYLATE GLUE GLUBRAN (GEM) DILUTED AT 33% WITH LIPIODOL.
     Route: 013
  3. POLYVINYL ALCOHOL [Suspect]
     Active Substance: POLYVINYL ALCOHOL
     Indication: Therapeutic embolisation
     Dosage: 150-250 MICRON
     Route: 013

REACTIONS (3)
  - Facial paralysis [Not Recovered/Not Resolved]
  - Device dislocation [Not Recovered/Not Resolved]
  - Ischaemic neuropathy [Not Recovered/Not Resolved]
